FAERS Safety Report 22254489 (Version 1)
Quarter: 2023Q2

REPORT INFORMATION
  Report Type: Spontaneous
  Country: US (occurrence: None)
  Receive Date: 20230425
  Receipt Date: 20230425
  Transmission Date: 20230721
  Serious: Yes (Hospitalization)
  Sender: FDA-Public Use
  Company Number: None

PATIENT
  Age: 47 Year
  Sex: Female
  Weight: 124.65 kg

DRUGS (2)
  1. QELBREE [Suspect]
     Active Substance: VILOXAZINE HYDROCHLORIDE
     Indication: Attention deficit hyperactivity disorder
     Dosage: OTHER QUANTITY : 2 CAPSULE(S);?
     Route: 048
     Dates: start: 20230329
  2. WEGOVY [Suspect]
     Active Substance: SEMAGLUTIDE
     Indication: Obesity
     Dosage: OTHER QUANTITY : 1 INJECTION(S);?OTHER FREQUENCY : WEEKLY;?OTHER ROUTE : INJECTION INTO LEFT ARM;?
     Route: 050
     Dates: start: 20230405

REACTIONS (12)
  - Gastritis [None]
  - Nausea [None]
  - Vomiting [None]
  - Abdominal pain [None]
  - Dehydration [None]
  - Therapy cessation [None]
  - Drug interaction [None]
  - Irritability [None]
  - Insomnia [None]
  - Dyspepsia [None]
  - Blood pressure increased [None]
  - Heart rate increased [None]

NARRATIVE: CASE EVENT DATE: 20230407
